FAERS Safety Report 15742336 (Version 2)
Quarter: 2019Q1

REPORT INFORMATION
  Report Type: Report from Study
  Country: JP (occurrence: JP)
  Receive Date: 20181219
  Receipt Date: 20190117
  Transmission Date: 20190417
  Serious: Yes (Hospitalization)
  Sender: FDA-Public Use
  Company Number: JP-GE HEALTHCARE LIFE SCIENCES-2018CSU003883

PATIENT

DRUGS (7)
  1. VIZAMYL [Suspect]
     Active Substance: FLUTEMETAMOL F-18
     Dosage: 185.81 MBQ, SINGLE
     Route: 042
     Dates: start: 20180524, end: 20180524
  2. PITAVASTATIN. [Concomitant]
     Active Substance: PITAVASTATIN CALCIUM
     Indication: HYPERLIPIDAEMIA
     Dosage: 1 MG, QD
     Route: 048
     Dates: start: 20090608
  3. ADUCANUMAB [Suspect]
     Active Substance: ADUCANUMAB
     Indication: DEMENTIA ALZHEIMER^S TYPE
     Dosage: UNK, SINGLE
     Route: 065
     Dates: start: 20161213, end: 20180918
  4. FLUTICASONE PROPIONATE. [Concomitant]
     Active Substance: FLUTICASONE PROPIONATE
     Indication: RHINITIS ALLERGIC
     Dosage: AS NEEDED
  5. VIZAMYL [Suspect]
     Active Substance: FLUTEMETAMOL F-18
     Indication: DEMENTIA ALZHEIMER^S TYPE
     Dosage: 184.65 MBQ, SINGLE
     Route: 042
     Dates: start: 20161121, end: 20161121
  6. DONEPEZIL. [Concomitant]
     Active Substance: DONEPEZIL
     Indication: DEMENTIA ALZHEIMER^S TYPE
     Dosage: 5 MG, QD
     Route: 048
     Dates: start: 20160618
  7. VIZAMYL [Suspect]
     Active Substance: FLUTEMETAMOL F-18
     Dosage: 182.96 MBQ, SINGLE
     Route: 042
     Dates: start: 20170703, end: 20170703

REACTIONS (1)
  - Iron deficiency anaemia [Recovered/Resolved]

NARRATIVE: CASE EVENT DATE: 20180927
